FAERS Safety Report 19769164 (Version 1)
Quarter: 2021Q3

REPORT INFORMATION
  Report Type: Spontaneous
  Country: US (occurrence: US)
  Receive Date: 20210826
  Receipt Date: 20210826
  Transmission Date: 20211014
  Serious: Yes (Hospitalization)
  Sender: FDA-Public Use
  Company Number: None

PATIENT
  Sex: Female

DRUGS (1)
  1. CAPECITABINE 500MG NOVADOZ PHARMACEUTICALS [Suspect]
     Active Substance: CAPECITABINE
     Indication: COLON CANCER
     Dosage: TAKE 4 TABLETS BY MOUTH IN THE MORNING AND 3 TABLETS IN THE EVENING FOR 14 DAYS ON, THEN 7 DAYS OFF
     Route: 048
     Dates: start: 202104

REACTIONS (1)
  - Adverse drug reaction [None]
